FAERS Safety Report 10370445 (Version 2)
Quarter: 2014Q3

REPORT INFORMATION
  Report Type: Spontaneous
  Country: US (occurrence: US)
  Receive Date: 20140808
  Receipt Date: 20140811
  Transmission Date: 20150326
  Serious: Yes (Death, Other)
  Sender: FDA-Public Use
  Company Number: US-ASTRAZENECA-2014SE56785

PATIENT
  Age: 62 Year
  Sex: Female

DRUGS (12)
  1. IBUPROFEN. [Interacting]
     Active Substance: IBUPROFEN
  2. METHOTREXATE SODIUM. [Interacting]
     Active Substance: METHOTREXATE SODIUM
     Indication: PSORIASIS
  3. SOLU-MEDROL [Concomitant]
     Active Substance: METHYLPREDNISOLONE SODIUM SUCCINATE
  4. PIPERACILLIN/TAZOBACTAM [Concomitant]
     Active Substance: PIPERACILLIN SODIUM\TAZOBACTAM SODIUM
  5. GLIPIZIDE. [Concomitant]
     Active Substance: GLIPIZIDE
  6. ESOMEPRAZOLE MAGNESIUM. [Suspect]
     Active Substance: ESOMEPRAZOLE MAGNESIUM
     Route: 048
  7. VANCOMYCIN [Concomitant]
     Active Substance: VANCOMYCIN
  8. METHOTREXATE SODIUM. [Interacting]
     Active Substance: METHOTREXATE SODIUM
     Indication: RHEUMATOID ARTHRITIS
  9. ASPIRIN. [Suspect]
     Active Substance: ASPIRIN
  10. FUROSEMIDE. [Concomitant]
     Active Substance: FUROSEMIDE
  11. METOLAZONE. [Concomitant]
     Active Substance: METOLAZONE
  12. INSULIN [Concomitant]
     Active Substance: INSULIN NOS

REACTIONS (4)
  - Pancytopenia [Fatal]
  - Drug interaction [Fatal]
  - Toxicity to various agents [Fatal]
  - Psoriasis [Fatal]

NARRATIVE: CASE EVENT DATE: 1996
